FAERS Safety Report 6149593-7 (Version None)
Quarter: 2009Q2

REPORT INFORMATION
  Report Type: 
  Country: None (occurrence: None)
  Receive Date: 20090409
  Receipt Date: 20090401
  Transmission Date: 20091009
  Serious: Yes (Other)
  Sender: FDA-Public Use
  Company Number: US-ROCHE-625300

PATIENT
  Sex: Male
  Weight: 59 kg

DRUGS (4)
  1. CAPECITABINE [Suspect]
     Route: 048
     Dates: start: 20090120, end: 20090314
  2. FLOMAX [Concomitant]
  3. PREVACID [Concomitant]
  4. PANCREATIC ENZYME [Concomitant]

REACTIONS (1)
  - DISEASE PROGRESSION [None]
